FAERS Safety Report 8098125-5 (Version None)
Quarter: 2012Q1

REPORT INFORMATION
  Report Type: 
  Country: None (occurrence: None)
  Receive Date: 20120128
  Receipt Date: 20110819
  Transmission Date: 20120608
  Serious: No
  Sender: FDA-Public Use
  Company Number: US-ABBOTT-11P-163-0845063-00

PATIENT
  Sex: Male
  Weight: 63.56 kg

DRUGS (3)
  1. IBUPROFEN (ADVIL) [Concomitant]
     Indication: PRODUCT USED FOR UNKNOWN INDICATION
  2. HUMIRA [Suspect]
     Indication: RHEUMATOID ARTHRITIS
     Dates: start: 20110105
  3. VITAMIN TAB [Concomitant]
     Indication: VITAMIN SUPPLEMENTATION

REACTIONS (9)
  - MUSCULOSKELETAL PAIN [None]
  - POOR QUALITY DRUG ADMINISTERED [None]
  - PAIN IN JAW [None]
  - RHEUMATOID ARTHRITIS [None]
  - ILL-DEFINED DISORDER [None]
  - ARTHRALGIA [None]
  - PAIN [None]
  - OEDEMA PERIPHERAL [None]
  - DRUG INEFFECTIVE [None]
